FAERS Safety Report 10714842 (Version 1)
Quarter: 2015Q1

REPORT INFORMATION
  Report Type: Other
  Country: FR (occurrence: FR)
  Receive Date: 20150115
  Receipt Date: 20150115
  Transmission Date: 20150721
  Serious: Yes (Hospitalization, Other)
  Sender: FDA-Public Use
  Company Number: FR-ARIAD PHARMACEUTICALS, INC-2015FR004396

PATIENT

DRUGS (4)
  1. ICLUSIG [Suspect]
     Active Substance: PONATINIB
     Indication: ACUTE LYMPHOCYTIC LEUKAEMIA
     Dosage: 30 MG, QD
     Route: 048
     Dates: start: 20130710
  2. ICLUSIG [Suspect]
     Active Substance: PONATINIB
     Dosage: 15 MG, QD
     Route: 048
     Dates: start: 20130916, end: 20131013
  3. ICLUSIG [Suspect]
     Active Substance: PONATINIB
     Dosage: 15 MG, 3X/WEEK
     Route: 048
     Dates: start: 20131021
  4. ICLUSIG [Suspect]
     Active Substance: PONATINIB
     Dosage: 15 MG, QOD
     Route: 048
     Dates: start: 201403, end: 20140813

REACTIONS (8)
  - Arthritis bacterial [Unknown]
  - Blood potassium increased [None]
  - Acute myocardial infarction [Recovered/Resolved]
  - Coronary artery disease [Unknown]
  - Respiratory distress [None]
  - Anaemia [None]
  - Sepsis [Unknown]
  - Angina pectoris [None]

NARRATIVE: CASE EVENT DATE: 20130907
